FAERS Safety Report 16744708 (Version 1)
Quarter: 2019Q3

REPORT INFORMATION
  Report Type: Spontaneous
  Country: FR (occurrence: FR)
  Receive Date: 20190827
  Receipt Date: 20190827
  Transmission Date: 20191005
  Serious: Yes (Death)
  Sender: FDA-Public Use
  Company Number: FR-PFIZER INC-2019364687

PATIENT
  Age: 82 Year
  Sex: Male
  Weight: 88 kg

DRUGS (22)
  1. PROCORALAN [Concomitant]
     Active Substance: IVABRADINE
  2. CYANOCOBALAMINE [Concomitant]
     Active Substance: CYANOCOBALAMIN
  3. ESOMEPRAZOLE MAGNESIUM. [Suspect]
     Active Substance: ESOMEPRAZOLE MAGNESIUM
     Indication: PRODUCT USED FOR UNKNOWN INDICATION
     Dosage: 40 MG, 1X/DAY
     Route: 048
     Dates: end: 20190722
  4. PAMIDRONATE DISODIUM. [Suspect]
     Active Substance: PAMIDRONATE DISODIUM
     Indication: SPINAL FRACTURE
     Dosage: 30 MG, 1X/DAY
     Route: 042
     Dates: start: 20190720, end: 20190722
  5. ACUPAN [Suspect]
     Active Substance: NEFOPAM HYDROCHLORIDE
     Indication: BACK PAIN
     Dosage: 4 DF, 1X/DAY
     Route: 065
     Dates: start: 20190708, end: 20190716
  6. UROREC [Concomitant]
     Active Substance: SILODOSIN
  7. LOVENOX [Concomitant]
     Active Substance: ENOXAPARIN SODIUM
  8. KETOPROFEN. [Suspect]
     Active Substance: KETOPROFEN
     Indication: BACK PAIN
     Dosage: 200 MG, 1X/DAY
     Route: 048
     Dates: start: 20190708, end: 20190716
  9. STILNOX [Concomitant]
     Active Substance: ZOLPIDEM TARTRATE
  10. TIMOFEROL [Concomitant]
     Active Substance: ASCORBIC ACID\FERROUS SULFATE
  11. SKENAN [Concomitant]
     Active Substance: MORPHINE SULFATE
  12. DAFALGAN [Concomitant]
     Active Substance: ACETAMINOPHEN
  13. TRIATEC [RAMIPRIL] [Suspect]
     Active Substance: RAMIPRIL
     Indication: HYPERTENSION
     Dosage: 5 MG, 1X/DAY
     Route: 048
     Dates: end: 20190722
  14. EPINITRIL [Concomitant]
     Active Substance: NITROGLYCERIN
     Route: 062
  15. EFFEXOR [Concomitant]
     Active Substance: VENLAFAXINE HYDROCHLORIDE
  16. LASILIX [FUROSEMIDE] [Concomitant]
     Active Substance: FUROSEMIDE
  17. SPECIAFOLDINE [Concomitant]
     Active Substance: FOLIC ACID
  18. ABASAGLAR [Concomitant]
     Active Substance: INSULIN GLARGINE
  19. XANAX [Concomitant]
     Active Substance: ALPRAZOLAM
  20. KARDEGIC [Suspect]
     Active Substance: ASPIRIN DL-LYSINE
     Indication: PRODUCT USED FOR UNKNOWN INDICATION
     Dosage: 75 MG, 1X/DAY
     Route: 048
     Dates: end: 20190722
  21. ACTISKENAN [Concomitant]
     Active Substance: MORPHINE SULFATE
  22. SMECTA [Concomitant]
     Active Substance: MONTMORILLONITE

REACTIONS (2)
  - Acute kidney injury [Fatal]
  - Condition aggravated [Fatal]

NARRATIVE: CASE EVENT DATE: 20190716
